FAERS Safety Report 6640155-1 (Version None)
Quarter: 2010Q1

REPORT INFORMATION
  Report Type: 
  Country: None (occurrence: None)
  Receive Date: 20100318
  Receipt Date: 20100309
  Transmission Date: 20100710
  Serious: Yes (Hospitalization)
  Sender: FDA-Public Use
  Company Number: US-ROCHE-688056

PATIENT
  Age: 43 Year
  Sex: Female

DRUGS (6)
  1. TRASTUZUMAB [Suspect]
     Indication: BREAST CANCER
     Dosage: REPORTING PERIOD: DOSES 1- 2, MOST RECENT DOSE ON 29 OCT 2008, ROUTE TAKEN FROM CLINICAL TRIAL
     Route: 042
  2. EPIRUBICIN [Suspect]
     Indication: BREAST CANCER
     Dosage: ROUTE, DOSE, FREQUENCY WERE TAKEN FROM CLINICAL TRIAL PROTOCOL.
     Route: 042
  3. CYCLOPHOSPHAMIDE [Suspect]
     Indication: BREAST CANCER
     Dosage: ROUTE, DOSE, FREQUENCY WERE TAKEN FROM CLINICAL TRIAL PROTOCOL.
     Route: 042
  4. DOCETAXEL [Suspect]
     Indication: BREAST CANCER
     Dosage: ROUTE, DOSE, FREQUENCY WERE TAKEN FROM CLINICAL TRIAL PROTOCOL. ON DAY 1 EVERY 21 DAYS
     Route: 042
  5. VALIUM [Suspect]
     Indication: DRUG USE FOR UNKNOWN INDICATION
     Dosage: LAST DATE GIVEN: 16 NOV 2008, FORM: PILLS, DOSE: 90 VALIUM 10MG PILLS.
     Route: 065
  6. OPIATE NOS [Suspect]
     Indication: BACK PAIN
     Dosage: LAST DATE GIVEN: 16 NOV 2008, DRUG: OPIATES
     Route: 065

REACTIONS (1)
  - DEPRESSION [None]
